FAERS Safety Report 24202469 (Version 1)
Quarter: 2024Q3

REPORT INFORMATION
  Report Type: Spontaneous
  Country: BG (occurrence: BG)
  Receive Date: 20240813
  Receipt Date: 20240813
  Transmission Date: 20241017
  Serious: Yes (Hospitalization, Other)
  Sender: CHEPLAPHARM
  Company Number: None

PATIENT
  Age: 46 Year
  Sex: Female

DRUGS (3)
  1. OLANZAPINE [Suspect]
     Active Substance: OLANZAPINE
     Indication: Product used for unknown indication
     Dosage: INGESTION OF A POTENTIALLY LETHAL AMOUNT OF ANTIPSYCHOTIC AND NEUROLEPTIC MEDICATIONS WITH SUICID...
     Dates: start: 20240507, end: 20240507
  2. CLOZAPINE [Suspect]
     Active Substance: CLOZAPINE
     Indication: Product used for unknown indication
     Dosage: INGESTION OF A POTENTIALLY LETHAL AMOUNT OF ANTIPSYCHOTIC AND NEUROLEPTIC MEDICATIONS WITH SUICID...
  3. PREGABALIN [Suspect]
     Active Substance: PREGABALIN
     Indication: Product used for unknown indication
     Dosage: INGESTION OF A POTENTIALLY LETHAL AMOUNT OF ANTIPSYCHOTIC AND NEUROLEPTIC MEDICATIONS WITH SUICID...

REACTIONS (7)
  - Suicide attempt [Recovered/Resolved]
  - Intentional overdose [Recovered/Resolved]
  - Loss of consciousness [Recovered/Resolved]
  - General physical health deterioration [Unknown]
  - Coma [Unknown]
  - Tachyarrhythmia [Recovered/Resolved]
  - Oliguria [Unknown]

NARRATIVE: CASE EVENT DATE: 20240507
